FAERS Safety Report 9845789 (Version 2)
Quarter: 2014Q1

REPORT INFORMATION
  Report Type: Report from Study
  Country: NL (occurrence: NL)
  Receive Date: 20140127
  Receipt Date: 20140127
  Transmission Date: 20141002
  Serious: Yes (Hospitalization)
  Sender: FDA-Public Use
  Company Number: NL-ABBVIE-14P-114-1187458-00

PATIENT
  Age: 82 Year
  Sex: Male
  Weight: 63 kg

DRUGS (5)
  1. LUCRIN DEPOT [Suspect]
     Indication: PROSTATE CANCER
     Route: 058
     Dates: start: 20101011
  2. OMEPRAZOL EC [Concomitant]
     Indication: GASTRIC DISORDER
     Route: 048
     Dates: start: 2004
  3. OMEPRAZOL EC [Concomitant]
     Indication: PROPHYLAXIS
  4. AVODART [Concomitant]
     Indication: PROSTATE CANCER
     Route: 048
     Dates: start: 2004
  5. BONEFOS [Concomitant]
     Indication: OSTEOPOROSIS PROPHYLAXIS
     Route: 048
     Dates: start: 2004

REACTIONS (1)
  - Pneumonia [Recovered/Resolved]
